FAERS Safety Report 23804877 (Version 4)
Quarter: 2024Q4

REPORT INFORMATION
  Report Type: Spontaneous
  Country: US (occurrence: US)
  Receive Date: 20240501
  Receipt Date: 20241017
  Transmission Date: 20250115
  Serious: Yes (Other)
  Sender: BRISTOL-MYERS SQUIBB COMPANY
  Company Number: US-BRISTOL-MYERS SQUIBB COMPANY-2024-066955

PATIENT
  Age: 85 Year
  Sex: Female

DRUGS (7)
  1. POMALYST [Suspect]
     Active Substance: POMALIDOMIDE
     Indication: Plasma cell myeloma
     Dosage: FREQUENCY: 1 TIME A DAY FOR 21 DAYS ON AND 7 DAYS OFF
     Route: 048
     Dates: start: 202403
  2. POMALYST [Suspect]
     Active Substance: POMALIDOMIDE
     Indication: Plasma cell myeloma recurrent
     Dosage: 1 TIME A DAY FOR 21 DAYS ON AND 7 DAYS OFF
     Route: 048
     Dates: start: 202404
  3. POMALYST [Suspect]
     Active Substance: POMALIDOMIDE
  4. POMALYST [Suspect]
     Active Substance: POMALIDOMIDE
     Route: 048
     Dates: start: 202404
  5. POMALYST [Suspect]
     Active Substance: POMALIDOMIDE
     Route: 048
  6. REVLIMID [Concomitant]
     Active Substance: LENALIDOMIDE
     Indication: Product used for unknown indication
  7. TRIAMTERENE AND HYDROCHLOROTHIAZIDE [Concomitant]
     Active Substance: HYDROCHLOROTHIAZIDE\TRIAMTERENE
     Indication: Product used for unknown indication

REACTIONS (7)
  - Neuropathy peripheral [Unknown]
  - Swelling [Unknown]
  - Pain [Unknown]
  - Peripheral swelling [Unknown]
  - Hypertension [Unknown]
  - Drug ineffective [Unknown]
  - Plasma cell myeloma recurrent [Unknown]
